FAERS Safety Report 23019903 (Version 1)
Quarter: 2023Q4

REPORT INFORMATION
  Report Type: Spontaneous
  Country: NO (occurrence: NO)
  Receive Date: 20231003
  Receipt Date: 20231003
  Transmission Date: 20240110
  Serious: Yes (Disabling)
  Sender: FDA-Public Use
  Company Number: None

PATIENT
  Age: 36 Year
  Sex: Female
  Weight: 60 kg

DRUGS (4)
  1. DALFAMPRIDINE [Suspect]
     Active Substance: DALFAMPRIDINE
     Indication: Gait disturbance
     Dosage: STRENGTH: 10 MG
     Dates: start: 202208, end: 20230706
  2. VITAMINS [Concomitant]
     Active Substance: VITAMINS
     Dosage: 3 HOURS AFTER MEDICATION
  3. VITAMIN D [Concomitant]
     Active Substance: VITAMIN D NOS
     Dosage: 3 HOURS AFTER MEDICATION
  4. DALFAMPRIDINE [Suspect]
     Active Substance: DALFAMPRIDINE
     Indication: Gait disturbance
     Dosage: STRENGTH: 10 MG
     Dates: start: 20220501

REACTIONS (18)
  - Muscle spasms [Recovered/Resolved]
  - Gastrointestinal disorder [Not Recovered/Not Resolved]
  - Limb discomfort [Recovered/Resolved]
  - Confusional state [Not Recovered/Not Resolved]
  - Dizziness [Not Recovered/Not Resolved]
  - Bladder dysfunction [Not Recovered/Not Resolved]
  - Hypoaesthesia [Recovered/Resolved]
  - Gait inability [Not Recovered/Not Resolved]
  - Nausea [Not Recovered/Not Resolved]
  - Motor dysfunction [Recovered/Resolved]
  - Balance disorder [Not Recovered/Not Resolved]
  - Dysstasia [Not Recovered/Not Resolved]
  - Product substitution issue [Unknown]
  - Fatigue [Not Recovered/Not Resolved]
  - Fine motor skill dysfunction [Not Recovered/Not Resolved]
  - Gait disturbance [Recovered/Resolved]
  - Motor dysfunction [Not Recovered/Not Resolved]
  - Fall [Unknown]

NARRATIVE: CASE EVENT DATE: 20220501
